FAERS Safety Report 8819999 (Version 7)
Quarter: 2013Q2

REPORT INFORMATION
  Report Type: Report from Study
  Country: DE (occurrence: DE)
  Receive Date: 20121001
  Receipt Date: 20130603
  Transmission Date: 20140414
  Serious: Yes (Hospitalization, Other)
  Sender: FDA-Public Use
  Company Number: PHHO2012DE014082

PATIENT
  Sex: Female
  Weight: 68 kg

DRUGS (8)
  1. MYFORTIC [Suspect]
     Indication: RENAL TRANSPLANT
     Dosage: 720 MG, BID
     Route: 048
     Dates: start: 20120803, end: 20121009
  2. MYFORTIC [Suspect]
     Dosage: 360 MG, BID
     Route: 048
     Dates: start: 201302
  3. PROGRAF [Interacting]
     Indication: RENAL TRANSPLANT
     Dosage: 1.5-0-1 MG
     Route: 048
     Dates: start: 20120803, end: 20121009
  4. PROGRAF [Interacting]
     Dosage: 0.5-0-0.5 MG
     Route: 048
  5. SIMULECT [Suspect]
     Indication: RENAL TRANSPLANT
     Dosage: 20 MG, QD
     Route: 042
     Dates: start: 20120803
  6. CERTICAN [Suspect]
     Indication: RENAL TRANSPLANT
     Dosage: 2.5-0-2.5 MG
     Route: 048
     Dates: start: 20121029
  7. DIFLUCAN [Interacting]
     Dosage: UNK
     Dates: end: 20120928
  8. PREDNISONE [Concomitant]
     Indication: RENAL TRANSPLANT
     Dosage: 10 MG, QD
     Route: 048
     Dates: start: 20120805

REACTIONS (5)
  - Renal impairment [Recovered/Resolved]
  - Enterocolitis [Recovered/Resolved]
  - Kidney transplant rejection [Recovered/Resolved]
  - Drug interaction [Recovered/Resolved]
  - Cardiac failure [Recovered/Resolved]
